FAERS Safety Report 12515929 (Version 1)
Quarter: 2016Q2

REPORT INFORMATION
  Report Type: Spontaneous
  Country: CN (occurrence: CN)
  Receive Date: 20160630
  Receipt Date: 20160630
  Transmission Date: 20160815
  Serious: Yes (Hospitalization, Disabling, Other)
  Sender: FDA-Public Use
  Company Number: CN-WATSON-2016-13944

PATIENT
  Age: 50 Year
  Sex: Female

DRUGS (1)
  1. TRIAMCINOLONE ACETONIDE (WATSON LABORATORIES) [Suspect]
     Active Substance: TRIAMCINOLONE ACETONIDE
     Indication: TENOSYNOVITIS
     Dosage: 1 ML, SINGLE
     Route: 026

REACTIONS (1)
  - Extremity necrosis [Recovering/Resolving]
